FAERS Safety Report 6579766-0 (Version None)
Quarter: 2010Q1

REPORT INFORMATION
  Report Type: 
  Country: None (occurrence: None)
  Receive Date: 20100212
  Receipt Date: 20100205
  Transmission Date: 20100710
  Serious: Yes (Other)
  Sender: FDA-Public Use
  Company Number: B0603999A

PATIENT
  Sex: Female

DRUGS (4)
  1. RELENZA [Suspect]
     Indication: INFLUENZA
     Dosage: 10MG TWICE PER DAY
     Route: 055
     Dates: start: 20091109, end: 20091110
  2. MEPTIN [Concomitant]
     Dosage: 25MCG TWICE PER DAY
     Route: 048
     Dates: start: 20091109, end: 20091110
  3. APLACE [Concomitant]
     Dosage: 100MG PER DAY
     Route: 048
     Dates: start: 20091109, end: 20091110
  4. ALLEGRA [Concomitant]
     Dosage: 60MG PER DAY
     Route: 048
     Dates: start: 20091102, end: 20091110

REACTIONS (4)
  - FALL [None]
  - LOSS OF CONSCIOUSNESS [None]
  - NECK INJURY [None]
  - PRESYNCOPE [None]
